FAERS Safety Report 13216281 (Version 1)
Quarter: 2017Q1

REPORT INFORMATION
  Report Type: Spontaneous
  Country: US (occurrence: US)
  Receive Date: 20170210
  Receipt Date: 20170210
  Transmission Date: 20170428
  Serious: No
  Sender: FDA-Public Use
  Company Number: US-ASTRAZENECA-2017SE12776

PATIENT
  Age: 893 Month
  Sex: Female

DRUGS (2)
  1. ATORVASTATIN [Concomitant]
     Active Substance: ATORVASTATIN
     Dosage: DAILY
     Route: 065
  2. DALIRESP [Suspect]
     Active Substance: ROFLUMILAST
     Indication: LUNG DISORDER
     Route: 048
     Dates: start: 20170124

REACTIONS (5)
  - Body height decreased [Unknown]
  - Dizziness [Unknown]
  - Fatigue [Unknown]
  - Drug dose omission [Unknown]
  - Nausea [Unknown]

NARRATIVE: CASE EVENT DATE: 201701
